FAERS Safety Report 9095981 (Version 2)
Quarter: 2013Q1

REPORT INFORMATION
  Report Type: Spontaneous
  Country: IT (occurrence: IT)
  Receive Date: 20130207
  Receipt Date: 20130322
  Transmission Date: 20140127
  Serious: Yes (Hospitalization)
  Sender: FDA-Public Use
  Company Number: IT-JNJFOC-20130200036

PATIENT
  Age: 11 Year
  Sex: Male

DRUGS (3)
  1. REMICADE [Suspect]
     Indication: JUVENILE IDIOPATHIC ARTHRITIS
     Route: 042
     Dates: start: 20120921
  2. REMICADE [Suspect]
     Indication: JUVENILE IDIOPATHIC ARTHRITIS
     Route: 042
     Dates: start: 20121219, end: 20121219
  3. METHOTREXATE [Concomitant]
     Dosage: 10 MG/1.3 ML (STRENGTH)
     Route: 058

REACTIONS (5)
  - Cyclic vomiting syndrome [Recovered/Resolved]
  - Dyspnoea [Recovered/Resolved]
  - Hypotension [Recovered/Resolved]
  - Musculoskeletal pain [Recovered/Resolved]
  - Infusion related reaction [Recovered/Resolved]
